FAERS Safety Report 4673842-5 (Version None)
Quarter: 2005Q2

REPORT INFORMATION
  Report Type: 
  Country: None (occurrence: None)
  Receive Date: 20050524
  Receipt Date: 20050509
  Transmission Date: 20051028
  Serious: Yes (Hospitalization)
  Sender: FDA-Public Use
  Company Number: EWC050543795

PATIENT
  Age: 18 Year
  Sex: Male

DRUGS (4)
  1. ZYPREXA [Suspect]
     Indication: DRUG DETOXIFICATION
     Dosage: 10 MG DAY
  2. BUPRENORPHINE [Concomitant]
  3. LEVOMEPROMAZINE [Concomitant]
  4. DIAZEPAM [Concomitant]

REACTIONS (6)
  - COMA [None]
  - DRUG INTERACTION [None]
  - DRUG TOXICITY [None]
  - INTENTIONAL MISUSE [None]
  - INTENTIONAL SELF-INJURY [None]
  - SOPOR [None]
